FAERS Safety Report 21493539 (Version 1)
Quarter: 2022Q4

REPORT INFORMATION
  Report Type: Spontaneous
  Country: US (occurrence: None)
  Receive Date: 20221021
  Receipt Date: 20221021
  Transmission Date: 20230112
  Serious: Yes (Disabling)
  Sender: FDA-Public Use
  Company Number: None

PATIENT
  Age: 40 Year
  Sex: Female

DRUGS (1)
  1. AJOVY [Suspect]
     Active Substance: FREMANEZUMAB-VFRM
     Indication: Migraine
     Dates: start: 20220822, end: 20220922

REACTIONS (3)
  - Injection site erythema [None]
  - Injection site pruritus [None]
  - Injection site pain [None]

NARRATIVE: CASE EVENT DATE: 20220922
